FAERS Safety Report 5984288-1 (Version None)
Quarter: 2008Q4

REPORT INFORMATION
  Report Type: 
  Country: None (occurrence: None)
  Receive Date: 20081208
  Receipt Date: 20080311
  Transmission Date: 20090506
  Serious: No
  Sender: FDA-Public Use
  Company Number: US-AMGEN-KDL269210

PATIENT
  Sex: Female
  Weight: 63.6 kg

DRUGS (1)
  1. ENBREL [Suspect]
     Indication: PSORIASIS
     Dates: start: 20070801, end: 20070901

REACTIONS (3)
  - DRUG HYPERSENSITIVITY [None]
  - INJECTION SITE REACTION [None]
  - RASH [None]
